FAERS Safety Report 9097656 (Version 2)
Quarter: 2013Q1

REPORT INFORMATION
  Report Type: Spontaneous
  Country: BR (occurrence: BR)
  Receive Date: 20130212
  Receipt Date: 20130305
  Transmission Date: 20140127
  Serious: Yes (Other)
  Sender: FDA-Public Use
  Company Number: PHHY2013BR012546

PATIENT
  Age: 61 Year
  Sex: Male
  Weight: 72 kg

DRUGS (5)
  1. ACLASTA [Suspect]
     Indication: OSTEOPOROSIS
     Dosage: 5 MG, ONE INJECTION
     Route: 042
     Dates: start: 20121121
  2. PONDERA [Concomitant]
     Indication: DEPRESSION
     Dosage: 2 DF DAILY (2 TABLETS DAILY)
     Route: 048
  3. VYTORIN [Concomitant]
     Indication: BLOOD CHOLESTEROL INCREASED
     Dosage: 1 DF DAILY (1 TABLET DAILY)
     Route: 048
  4. LEXOTAN [Concomitant]
     Indication: SLEEP DISORDER
     Dosage: 1 DF, AT NIGHT
     Route: 048
  5. RIVOTRIL [Concomitant]
     Indication: SLEEP DISORDER
     Dosage: 3 DF, DAILY (3 DROPS DAILY)
     Route: 048

REACTIONS (8)
  - Eye swelling [Recovered/Resolved]
  - Eye discharge [Recovered/Resolved]
  - Visual impairment [Recovered/Resolved]
  - Eye irritation [Recovered/Resolved]
  - Eye pruritus [Recovered/Resolved]
  - Eyelid oedema [Recovered/Resolved]
  - Ocular hyperaemia [Recovered/Resolved]
  - Angioedema [Recovered/Resolved]
